FAERS Safety Report 6162938-7 (Version None)
Quarter: 2009Q2

REPORT INFORMATION
  Report Type: 
  Country: None (occurrence: None)
  Receive Date: 20090420
  Receipt Date: 20090406
  Transmission Date: 20091009
  Serious: Yes (Death, Life-Threatening, Hospitalization, Other)
  Sender: FDA-Public Use
  Company Number: 58554

PATIENT
  Age: 84 Year
  Sex: Female
  Weight: 93 kg

DRUGS (3)
  1. PACLITAXEL [Suspect]
     Indication: UTERINE CANCER
     Dates: start: 20090403
  2. PACLITAXEL [Suspect]
     Indication: UTERINE CANCER
     Dates: start: 20090403
  3. PACLITAXEL [Suspect]

REACTIONS (4)
  - ANAPHYLACTIC REACTION [None]
  - CARDIO-RESPIRATORY ARREST [None]
  - ELECTROMECHANICAL DISSOCIATION [None]
  - INFUSION RELATED REACTION [None]
